FAERS Safety Report 24428861 (Version 2)
Quarter: 2025Q3

REPORT INFORMATION
  Report Type: Spontaneous
  Country: US (occurrence: US)
  Receive Date: 20241011
  Receipt Date: 20250909
  Transmission Date: 20251021
  Serious: Yes (Other)
  Sender: DOMPE FARMACEUTICI
  Company Number: US-FARMAPROD-202409-3269

PATIENT
  Sex: Female

DRUGS (2)
  1. OXERVATE [Suspect]
     Active Substance: CENEGERMIN-BKBJ
     Indication: Neurotrophic keratopathy
     Route: 047
     Dates: start: 20240906
  2. OXERVATE [Suspect]
     Active Substance: CENEGERMIN-BKBJ

REACTIONS (5)
  - Ankle operation [Unknown]
  - Eye pain [Not Recovered/Not Resolved]
  - Periorbital pain [Unknown]
  - Wrong technique in product usage process [Unknown]
  - Intentional product misuse [Unknown]
